FAERS Safety Report 5268856-0 (Version None)
Quarter: 2007Q1

REPORT INFORMATION
  Report Type: 
  Country: None (occurrence: None)
  Receive Date: 20061212
  Receipt Date: 20050228
  Transmission Date: 20070707
  Serious: Yes (Hospitalization)
  Sender: FDA-Public Use
  Company Number: 2005UW03193

PATIENT
  Age: 89 Year
  Sex: Male

DRUGS (1)
  1. CASODEX [Suspect]

REACTIONS (1)
  - CONFUSIONAL STATE [None]
